FAERS Safety Report 16844980 (Version 7)
Quarter: 2020Q4

REPORT INFORMATION
  Report Type: Spontaneous
  Country: US (occurrence: US)
  Receive Date: 20190924
  Receipt Date: 20201007
  Transmission Date: 20210113
  Serious: Yes (Disabling, Other)
  Sender: FDA-Public Use
  Company Number: US-PFIZER INC-2019407464

PATIENT
  Age: 79 Year
  Sex: Female
  Weight: 116.5 kg

DRUGS (28)
  1. VITAMIN D3 [Concomitant]
     Active Substance: CHOLECALCIFEROL
     Dosage: 1000 IU, 1X/DAY(TAKEN ONCE DAILY IN THE MORNING   )
     Dates: start: 2014
  2. COENZYME Q10 [Concomitant]
     Active Substance: DIETARY SUPPLEMENT\UBIDECARENONE
     Dosage: 10 MG, 3X/DAY
     Route: 048
  3. VITAMIN B COMPLEX [Concomitant]
     Active Substance: CYANOCOBALAMIN\DEXPANTHENOL\NIACINAMIDE\PYRIDOXINE HYDROCHLORIDE\RIBOFLAVIN 5^-PHOSPHATE SODIUM\THIAMINE HYDROCHLORIDE\VITAMIN B COMPLEX
     Dosage: UNK
     Dates: start: 2018
  4. TYLENOL [Concomitant]
     Active Substance: ACETAMINOPHEN
     Dosage: 500 MG, AS NEEDED, (TAKE 500 MG BY MOUTH EVERY 6 (SIX) HOURS AS NEEDED )
     Route: 048
  5. XELJANZ [Suspect]
     Active Substance: TOFACITINIB CITRATE
     Dosage: 5 MG, UNK
     Route: 048
  6. COENZYME Q10 [Concomitant]
     Active Substance: DIETARY SUPPLEMENT\UBIDECARENONE
     Indication: SUPPLEMENTATION THERAPY
     Dosage: 10 MG, 1X/DAY
     Route: 048
  7. TENORMIN [Concomitant]
     Active Substance: ATENOLOL
     Dosage: 100 MG, DAILY
     Route: 048
  8. COLACE [Concomitant]
     Active Substance: DOCUSATE SODIUM
     Indication: CONSTIPATION
     Dosage: 100 MG, DAILY
     Route: 048
  9. VITAMIN B12 [Concomitant]
     Active Substance: CYANOCOBALAMIN
     Dosage: UNK UNK, 1X/DAY, (ONE PER DAY)
  10. FLUTICASONE. [Concomitant]
     Active Substance: FLUTICASONE
     Dosage: UNK
     Dates: start: 2010
  11. PREDNISONE. [Concomitant]
     Active Substance: PREDNISONE
     Indication: RHEUMATOID ARTHRITIS
     Dosage: 5 MG, 1X/DAY
     Route: 048
     Dates: start: 2009
  12. VITAMIN D3 [Concomitant]
     Active Substance: CHOLECALCIFEROL
     Indication: SUPPLEMENTATION THERAPY
     Dosage: 1000 IU, DAILY
     Route: 048
     Dates: start: 200904
  13. FLONASE [Concomitant]
     Active Substance: FLUTICASONE PROPIONATE
     Dosage: 4 DF, DAILY  (50 MCG/ACT NASAL SUSPENSION SPRAY)
     Route: 045
  14. ULORIC [Concomitant]
     Active Substance: FEBUXOSTAT
     Dosage: 40 MG, ALTERNATE DAY, (ONE EVERY OTHER DAY)
  15. XELJANZ [Suspect]
     Active Substance: TOFACITINIB CITRATE
     Indication: RHEUMATOID ARTHRITIS
     Dosage: 5 MG, 1X/DAY
     Route: 048
     Dates: start: 2017
  16. LASIX [Concomitant]
     Active Substance: FUROSEMIDE
     Indication: RENAL DISORDER
     Dosage: 40 MG, DAILY
     Route: 048
     Dates: start: 200904
  17. AMBIEN [Concomitant]
     Active Substance: ZOLPIDEM TARTRATE
     Indication: SLEEP DISORDER
     Dosage: 5 MG, AS NEEDED TAKE 1 TABLET BY MOUTH NIGHTLY AS NEEDED FOR SLEEP)
     Route: 048
  18. XELJANZ [Suspect]
     Active Substance: TOFACITINIB CITRATE
     Indication: ARTHRALGIA
     Dosage: 5 MG, UNK
     Route: 048
     Dates: start: 2018
  19. VITAMIN B COMPLEX [Concomitant]
     Active Substance: CYANOCOBALAMIN\DEXPANTHENOL\NIACINAMIDE\PYRIDOXINE HYDROCHLORIDE\RIBOFLAVIN 5^-PHOSPHATE SODIUM\THIAMINE HYDROCHLORIDE\VITAMIN B COMPLEX
     Indication: ENERGY INCREASED
     Dosage: UNK
     Dates: start: 201908
  20. ZYLOPRIM [Concomitant]
     Active Substance: ALLOPURINOL
     Dosage: 100 MG, 1X/DAY
     Route: 048
  21. DELTASONE [Concomitant]
     Active Substance: PREDNISONE
     Dosage: 5 MG, DAILY
     Route: 048
  22. VALISONE [Concomitant]
     Active Substance: BETAMETHASONE VALERATE
     Dosage: UNK
  23. XELJANZ [Suspect]
     Active Substance: TOFACITINIB CITRATE
     Indication: ARTHRITIS
     Dosage: 5 MG, 1X/DAY
     Route: 048
  24. COENZYME Q10 [Concomitant]
     Active Substance: DIETARY SUPPLEMENT\UBIDECARENONE
     Dosage: UNK
     Dates: start: 200904
  25. FLUTICASONE. [Concomitant]
     Active Substance: FLUTICASONE
     Indication: HYPERSENSITIVITY
     Dosage: 50 UG, 2X/DAY(50MCG/ACT NASAL SPRAY INTO NOSTRILS TWICE DAILY   )
     Route: 045
     Dates: start: 1982
  26. HYDROCORTISONE [HYDROCORTISONE ACETATE] [Concomitant]
     Active Substance: HYDROCORTISONE ACETATE
     Dosage: UNK UNK, 2X/DAY, (APPLY 2 TIMES TWICE DAILY)
     Route: 061
  27. BEETROOT [Concomitant]
     Dosage: 605 MG, UNK
  28. COLCRYS [Concomitant]
     Active Substance: COLCHICINE
     Dosage: 0.6 MG, DAILY

REACTIONS (6)
  - Gait disturbance [Unknown]
  - Memory impairment [Unknown]
  - Fall [Unknown]
  - Cardiac failure [Unknown]
  - Peripheral swelling [Not Recovered/Not Resolved]
  - Gout [Not Recovered/Not Resolved]

NARRATIVE: CASE EVENT DATE: 2018
